FAERS Safety Report 8220972-7 (Version None)
Quarter: 2012Q1

REPORT INFORMATION
  Report Type: 
  Country: None (occurrence: None)
  Receive Date: 20120316
  Receipt Date: 20120306
  Transmission Date: 20120608
  Serious: Yes (Other)
  Sender: FDA-Public Use
  Company Number: 2011-4186

PATIENT
  Sex: Female

DRUGS (4)
  1. DYSPORT [Suspect]
     Indication: OFF LABEL USE
     Dosage: NOT REPORTED (NOT REPORTED, SINGLE CYCLE), PARENTERAL
     Route: 051
     Dates: start: 20110926, end: 20110926
  2. DYSPORT [Suspect]
     Indication: SKIN WRINKLING
     Dosage: NOT REPORTED (NOT REPORTED, SINGLE CYCLE), PARENTERAL
     Route: 051
     Dates: start: 20110926, end: 20110926
  3. DYSPORT [Suspect]
  4. UNNAMED NUMBING AGENT (ANAESTHETICS FOR TOPICAL USE) [Concomitant]

REACTIONS (10)
  - EYELID OEDEMA [None]
  - HYPERAESTHESIA [None]
  - NEURALGIA [None]
  - EYELID PTOSIS [None]
  - OFF LABEL USE [None]
  - EYELID FUNCTION DISORDER [None]
  - PARAESTHESIA [None]
  - CEREBRAL THROMBOSIS [None]
  - HEADACHE [None]
  - BURNING SENSATION [None]
